FAERS Safety Report 20551075 (Version 1)
Quarter: 2022Q1

REPORT INFORMATION
  Report Type: Spontaneous
  Country: US (occurrence: US)
  Receive Date: 20220304
  Receipt Date: 20220304
  Transmission Date: 20220423
  Serious: No
  Sender: FDA-Public Use
  Company Number: US-009507513-2202USA001535

PATIENT
  Sex: Male

DRUGS (2)
  1. VERQUVO [Suspect]
     Active Substance: VERICIGUAT
     Indication: Cardiac failure
     Dosage: 2.5 MILLIGRAM
     Route: 048
  2. VERQUVO [Suspect]
     Active Substance: VERICIGUAT
     Indication: Ischaemic cardiomyopathy

REACTIONS (6)
  - Swollen tongue [Recovered/Resolved]
  - Lip swelling [Recovered/Resolved]
  - Swelling face [Recovered/Resolved]
  - Swollen tongue [Unknown]
  - Lip swelling [Unknown]
  - Swelling face [Unknown]
